FAERS Safety Report 18277223 (Version 1)
Quarter: 2020Q3

REPORT INFORMATION
  Report Type: Spontaneous
  Country: US (occurrence: US)
  Receive Date: 20200916
  Receipt Date: 20200916
  Transmission Date: 20201103
  Serious: Yes (Other)
  Sender: FDA-Public Use
  Company Number: None

PATIENT
  Age: 77 Year
  Sex: Female
  Weight: 70.65 kg

DRUGS (17)
  1. CELEXIA [Concomitant]
  2. T3 [Concomitant]
     Active Substance: LIOTHYRONINE SODIUM
  3. ADDERALL [Concomitant]
     Active Substance: AMPHETAMINE ASPARTATE\AMPHETAMINE SULFATE\DEXTROAMPHETAMINE SACCHARATE\DEXTROAMPHETAMINE SULFATE
  4. DOXISOSIN [Concomitant]
  5. BENADRYL [Concomitant]
     Active Substance: DIPHENHYDRAMINE HYDROCHLORIDE
  6. CLOPIDOGREL [Suspect]
     Active Substance: CLOPIDOGREL BISULFATE
     Indication: ANTIPLATELET THERAPY
     Dosage: ?          QUANTITY:1 TABLET(S);?
     Route: 048
     Dates: start: 20181115, end: 20200915
  7. COREG [Concomitant]
     Active Substance: CARVEDILOL
  8. SYNTHROID [Concomitant]
     Active Substance: LEVOTHYROXINE SODIUM
  9. ZETIA [Concomitant]
     Active Substance: EZETIMIBE
  10. NIACIN. [Concomitant]
     Active Substance: NIACIN
  11. VD [Concomitant]
  12. VC [Concomitant]
     Active Substance: ASCORBIC ACID
  13. MAGNESIUM [Concomitant]
     Active Substance: MAGNESIUM
  14. ASA [Concomitant]
     Active Substance: ASPIRIN
  15. LISINAPRIL [Concomitant]
  16. ALLI [Concomitant]
     Active Substance: ORLISTAT
  17. TYL [Concomitant]

REACTIONS (2)
  - Erythema [None]
  - Skin exfoliation [None]

NARRATIVE: CASE EVENT DATE: 20200915
